FAERS Safety Report 9930096 (Version 1)
Quarter: 2014Q1

REPORT INFORMATION
  Report Type: Spontaneous
  Country: US (occurrence: US)
  Receive Date: 20140227
  Receipt Date: 20140227
  Transmission Date: 20141002
  Serious: No
  Sender: FDA-Public Use
  Company Number: US-AMGEN-USASP2013068155

PATIENT
  Age: 54 Year
  Sex: Female
  Weight: 65.76 kg

DRUGS (19)
  1. ENBREL [Suspect]
     Indication: RHEUMATOID ARTHRITIS
     Dosage: 50 MG, QWK
     Route: 058
  2. DILAUDID [Concomitant]
     Dosage: 2 MG, UNK
  3. MELATONIN [Concomitant]
     Dosage: 10 MG, UNK
  4. TRAZODONE [Concomitant]
     Dosage: 150 MG, UNK
  5. TOPAMAX [Concomitant]
     Dosage: 100 MG, UNK
  6. FLEXERIL                           /00428402/ [Concomitant]
     Dosage: 10 MG, UNK
  7. MECLIZINE                          /00072801/ [Concomitant]
     Dosage: 12.5 MG, UNK
  8. CYMBALTA [Concomitant]
     Dosage: 30 MG, UNK
  9. PROBIOTIC                          /06395501/ [Concomitant]
     Dosage: UNK
  10. SHARK CARTILAGE [Concomitant]
     Dosage: 740 MG, UNK
  11. NIACIN [Concomitant]
     Dosage: 125 MG, (ER) UNK
  12. FLAXSEED OIL [Concomitant]
     Dosage: UNK
  13. FISH OIL [Concomitant]
     Dosage: UNK
  14. MULTIVITAMINS, PLAIN [Concomitant]
     Dosage: UNK
  15. VITAMIN C                          /00008001/ [Concomitant]
     Dosage: 500 MG, UNK
  16. RITALIN [Concomitant]
     Dosage: 20 MG, UNK
  17. ZOMIG [Concomitant]
     Dosage: 2.5 MG, UNK
  18. SUMATRIPTAN [Concomitant]
     Dosage: 50 MG, UNK
  19. VITAMIN D3 [Concomitant]
     Dosage: 10000 UNIT, UNK

REACTIONS (3)
  - Drug effect decreased [Unknown]
  - Fatigue [Unknown]
  - Pain [Unknown]
